FAERS Safety Report 4353359-8 (Version None)
Quarter: 2004Q2

REPORT INFORMATION
  Report Type: 
  Country: None (occurrence: None)
  Receive Date: 20040427
  Receipt Date: 20040415
  Transmission Date: 20050107
  Serious: Yes (Life-Threatening, Hospitalization)
  Sender: FDA-Public Use
  Company Number: HQWYE339802APR04

PATIENT
  Sex: Male

DRUGS (1)
  1. BENEFIX [Suspect]
     Indication: FACTOR IX DEFICIENCY
     Dosage: SEE IMAGE; ; DAY OF LIFE IDOL) #1
     Route: 042

REACTIONS (15)
  - ACIDOSIS [None]
  - DEEP VEIN THROMBOSIS [None]
  - GRAND MAL CONVULSION [None]
  - LOCAL SWELLING [None]
  - MENTAL STATUS CHANGES [None]
  - NEONATAL DISORDER [None]
  - NEONATAL RESPIRATORY ARREST [None]
  - NEONATAL RESPIRATORY DISTRESS SYNDROME [None]
  - OEDEMA PERIPHERAL [None]
  - PLEURAL EFFUSION [None]
  - SUBCLAVIAN VEIN THROMBOSIS [None]
  - SUPERIOR SAGITTAL SINUS THROMBOSIS [None]
  - SUPERIOR VENA CAVAL OCCLUSION [None]
  - THALAMUS HAEMORRHAGE [None]
  - THROMBOSIS [None]
